FAERS Safety Report 7781844-5 (Version None)
Quarter: 2011Q3

REPORT INFORMATION
  Report Type: 
  Country: None (occurrence: None)
  Receive Date: 20110927
  Receipt Date: 20110923
  Transmission Date: 20111222
  Serious: Yes (Other)
  Sender: FDA-Public Use
  Company Number: DE-BRISTOL-MYERS SQUIBB COMPANY-15873730

PATIENT
  Age: 75 Year
  Sex: Female
  Weight: 94 kg

DRUGS (11)
  1. INSULIN [Concomitant]
  2. HYDROCHLOROTHIAZIDE [Concomitant]
     Dosage: 1DF=40/10(UNITS NOT SPECIFIED).
  3. AMLODIPINE BESILATE + OLMESARTAN MEDOXOMIL [Concomitant]
     Dosage: 1DF=40/10(UNITS NOT SPECIFIED).
  4. METHOTREXATE [Suspect]
     Indication: RHEUMATOID ARTHRITIS
  5. BISOPROLOL FUMARATE [Concomitant]
     Dosage: 1DF=10NITS NOT SPECIFIED) IN THE MOR.
  6. ORENCIA [Suspect]
     Indication: RHEUMATOID ARTHRITIS
     Dosage: NO OF INF:6,FREQ:EVERY 4 WEEKS.
     Route: 042
     Dates: start: 20100929
  7. IBUPROFEN [Suspect]
     Indication: RHEUMATOID ARTHRITIS
  8. SIMVABETA [Concomitant]
     Dosage: 1DF=40(UNITS NOT SPECIFIED)IN THE MORN + EVENING.
  9. RAMIPRIL [Concomitant]
     Dosage: 1DF=5/25(UNITS NOT SPECIFIED)
  10. SIMVABETA [Concomitant]
  11. MOXONIDINE [Concomitant]
     Dosage: 1DF=0.3(UNITS NOT SPECIFIED) IN THE MOR+ EVENING.

REACTIONS (3)
  - MYOCARDIAL INFARCTION [None]
  - ATRIAL FIBRILLATION [None]
  - EXTRASYSTOLES [None]
